FAERS Safety Report 21860736 (Version 2)
Quarter: 2023Q1

REPORT INFORMATION
  Report Type: Report from Study
  Country: US (occurrence: US)
  Receive Date: 20230113
  Receipt Date: 20230223
  Transmission Date: 20230418
  Serious: Yes (Other)
  Sender: FDA-Public Use
  Company Number: US-HBP-2023US028196

PATIENT
  Sex: Male

DRUGS (5)
  1. VALCHLOR [Suspect]
     Active Substance: MECHLORETHAMINE
     Indication: Cutaneous T-cell lymphoma
     Dosage: THIN FILM, QD
     Route: 061
     Dates: start: 20170204
  2. VALCHLOR [Suspect]
     Active Substance: MECHLORETHAMINE
     Dosage: THIN FILM, QD ON OTHER AREAS EXCEPT HAND
     Route: 061
  3. TRIAMCINOLONE ACETONIDE [Concomitant]
     Active Substance: TRIAMCINOLONE ACETONIDE
     Dosage: UNK, UNKNOWN
     Dates: start: 20230104
  4. CARBIDOPA LEVODOPA [Concomitant]
     Active Substance: CARBIDOPA\LEVODOPA
     Dosage: UNK, UNKNOWN
  5. BAVENCIO [Concomitant]
     Active Substance: AVELUMAB
     Dosage: UNK, UNKNOWN

REACTIONS (5)
  - Cellulitis [Unknown]
  - Squamous cell carcinoma of skin [Not Recovered/Not Resolved]
  - Parkinson^s disease [Unknown]
  - Cutaneous T-cell lymphoma [Unknown]
  - Skin lesion [Unknown]
